FAERS Safety Report 7642823-1 (Version None)
Quarter: 2011Q3

REPORT INFORMATION
  Report Type: 
  Country: None (occurrence: None)
  Receive Date: 20110728
  Receipt Date: 20110723
  Transmission Date: 20111222
  Serious: Yes (Other)
  Sender: FDA-Public Use
  Company Number: US-CEPHALON-2011003901

PATIENT
  Age: 17 Year
  Sex: Female

DRUGS (2)
  1. NUVIGIL [Suspect]
     Route: 048
  2. SYMBYAX [Concomitant]

REACTIONS (3)
  - HYPOAESTHESIA [None]
  - VOMITING [None]
  - MIGRAINE [None]
